FAERS Safety Report 13757391 (Version 2)
Quarter: 2017Q3

REPORT INFORMATION
  Report Type: Report from Study
  Country: AU (occurrence: AU)
  Receive Date: 20170716
  Receipt Date: 20170719
  Transmission Date: 20171127
  Serious: Yes (Death)
  Sender: FDA-Public Use
  Company Number: PHHY2017AU104534

PATIENT
  Sex: Male

DRUGS (1)
  1. SANDOSTATIN LAR DEPOT [Suspect]
     Active Substance: OCTREOTIDE ACETATE
     Indication: NEUROENDOCRINE TUMOUR
     Dosage: 20 MG, UNK
     Route: 030

REACTIONS (5)
  - Malignant bowel obstruction [Fatal]
  - Renal failure [Fatal]
  - Metastasis [Fatal]
  - Malignant neoplasm progression [Fatal]
  - Sepsis [Fatal]
